FAERS Safety Report 19101032 (Version 1)
Quarter: 2021Q2

REPORT INFORMATION
  Report Type: Spontaneous
  Country: JP (occurrence: JP)
  Receive Date: 20210407
  Receipt Date: 20210407
  Transmission Date: 20210717
  Serious: Yes (Death, Hospitalization)
  Sender: FDA-Public Use
  Company Number: NVSJ2021JP005481

PATIENT
  Age: 94 Year
  Sex: Female

DRUGS (2)
  1. DOPAMIN [METHYLDOPA] [Suspect]
     Active Substance: METHYLDOPA
     Indication: PRODUCT USED FOR UNKNOWN INDICATION
     Dosage: UNK
     Route: 065
  2. ENTRESTO [Suspect]
     Active Substance: SACUBITRIL\VALSARTAN
     Indication: CARDIAC FAILURE CHRONIC
     Dosage: 200 MG
     Route: 048
     Dates: start: 20201015

REACTIONS (3)
  - Blood pressure decreased [Fatal]
  - Dehydration [Fatal]
  - General physical health deterioration [Fatal]
